FAERS Safety Report 14798888 (Version 1)
Quarter: 2018Q2

REPORT INFORMATION
  Report Type: Spontaneous
  Country: US (occurrence: US)
  Receive Date: 20180424
  Receipt Date: 20180424
  Transmission Date: 20180711
  Serious: Yes (Hospitalization, Other)
  Sender: FDA-Public Use
  Company Number: US-BAYER-2018-076206

PATIENT
  Age: 57 Year
  Sex: Male

DRUGS (1)
  1. ACETYLSALICYLIC ACID({=100 MG) [Suspect]
     Active Substance: ASPIRIN
     Dosage: UNK, QD

REACTIONS (11)
  - Mass [None]
  - Dyschezia [None]
  - Laceration [None]
  - Speech disorder [None]
  - Pharyngeal haemorrhage [None]
  - Facial pain [None]
  - Dysphagia [None]
  - Trismus [None]
  - Vascular pseudoaneurysm [None]
  - Swelling face [None]
  - Ear discomfort [None]
